FAERS Safety Report 7331580-4 (Version None)
Quarter: 2011Q1

REPORT INFORMATION
  Report Type: 
  Country: None (occurrence: None)
  Receive Date: 20110304
  Receipt Date: 20101110
  Transmission Date: 20110831
  Serious: No
  Sender: FDA-Public Use
  Company Number: A0891846A

PATIENT
  Age: 50 Year
  Sex: Female

DRUGS (6)
  1. PRISTIQ [Concomitant]
  2. DEPLIN [Concomitant]
  3. LAMOTRIGINE [Suspect]
     Indication: DEPRESSION
     Dosage: 200MG PER DAY
     Route: 048
     Dates: start: 20101027
  4. PREMARIN [Concomitant]
  5. LAMICTAL [Suspect]
     Indication: DEPRESSION
     Route: 048
     Dates: start: 20100825, end: 20101027
  6. THYROID TAB [Concomitant]

REACTIONS (4)
  - ELEVATED MOOD [None]
  - CONFUSIONAL STATE [None]
  - BLEPHAROSPASM [None]
  - DIZZINESS [None]
